FAERS Safety Report 4866519-4 (Version None)
Quarter: 2005Q4

REPORT INFORMATION
  Report Type: 
  Country: None (occurrence: None)
  Receive Date: 20051227
  Receipt Date: 20051005
  Transmission Date: 20060501
  Serious: Yes (Hospitalization, Other)
  Sender: FDA-Public Use
  Company Number: US-MERCK-0510USA04680

PATIENT
  Age: 36 Year
  Sex: Female
  Weight: 114 kg

DRUGS (6)
  1. VIOXX [Suspect]
     Indication: ARTHRITIS
     Route: 048
     Dates: start: 20010101, end: 20020101
  2. VIOXX [Suspect]
     Indication: PAIN
     Route: 048
     Dates: start: 20010101, end: 20020101
  3. PROZAC [Concomitant]
     Route: 065
  4. COVERA-HS [Concomitant]
     Route: 065
  5. ADDERALL TABLETS [Concomitant]
     Route: 065
  6. SYNTHROID [Concomitant]
     Route: 065

REACTIONS (16)
  - ANXIETY [None]
  - ATRIAL SEPTAL DEFECT [None]
  - CHEST PAIN [None]
  - COAGULATION FACTOR V LEVEL ABNORMAL [None]
  - DEPRESSION [None]
  - GASTROOESOPHAGEAL REFLUX DISEASE [None]
  - HYPOKALAEMIA [None]
  - HYPOPHOSPHATAEMIA [None]
  - HYPOTHYROIDISM [None]
  - PALPITATIONS [None]
  - PEPTIC ULCER [None]
  - PULMONARY VALVE INCOMPETENCE [None]
  - STILLBIRTH [None]
  - SUPRAVENTRICULAR TACHYCARDIA [None]
  - TRICUSPID VALVE INCOMPETENCE [None]
  - UMBILICAL CORD ABNORMALITY [None]
